FAERS Safety Report 11806893 (Version 1)
Quarter: 2015Q4

REPORT INFORMATION
  Report Type: Spontaneous
  Country: US (occurrence: US)
  Receive Date: 20151207
  Receipt Date: 20151207
  Transmission Date: 20160305
  Serious: No
  Sender: FDA-Public Use
  Company Number: US-ASTRAZENECA-2015SF13161

PATIENT
  Sex: Female

DRUGS (2)
  1. BYDUREON [Suspect]
     Active Substance: EXENATIDE
     Route: 058
  2. BYDUREON [Suspect]
     Active Substance: EXENATIDE
     Dosage: KIT, 2 MG ONCE A WEEK
     Route: 058

REACTIONS (6)
  - Weight decreased [Unknown]
  - Product quality issue [Unknown]
  - Injection site extravasation [Unknown]
  - Injection site mass [Unknown]
  - Drug dose omission [Unknown]
  - Injection site haemorrhage [Unknown]
